FAERS Safety Report 5687763-2 (Version None)
Quarter: 2008Q1

REPORT INFORMATION
  Report Type: 
  Country: None (occurrence: None)
  Receive Date: 20080328
  Receipt Date: 20061030
  Transmission Date: 20080703
  Serious: No
  Sender: FDA-Public Use
  Company Number: US-BAYER-US-2006-033363

PATIENT
  Age: 25 Year
  Sex: Female
  Weight: 108 kg

DRUGS (5)
  1. MIRENA [Suspect]
     Indication: CONTRACEPTION
     Route: 015
     Dates: start: 20061026, end: 20061030
  2. ZOVIRAX [Concomitant]
  3. EFFEXOR [Concomitant]
  4. ZOLOFT [Concomitant]
  5. DURAMOX [Concomitant]

REACTIONS (2)
  - INTRA-UTERINE CONTRACEPTIVE DEVICE EXPELLED [None]
  - VULVOVAGINAL DISCOMFORT [None]
